FAERS Safety Report 20521306 (Version 3)
Quarter: 2022Q2

REPORT INFORMATION
  Report Type: Spontaneous
  Country: US (occurrence: None)
  Receive Date: 20220226
  Receipt Date: 20220429
  Transmission Date: 20220720
  Serious: Yes (Hospitalization)
  Sender: FDA-Public Use
  Company Number: US-ROCHE-3036557

PATIENT
  Age: 13 Year
  Sex: Male
  Weight: 79.2 kg

DRUGS (3)
  1. HEMLIBRA [Suspect]
     Active Substance: EMICIZUMAB-KXWH
     Indication: Factor VIII deficiency
     Dosage: FREQUENCY: WEEKLY,
     Route: 058
     Dates: start: 202107
  2. ADYNOVATE [Concomitant]
     Active Substance: ANTIHEMOPHILIC FACTOR, HUMAN RECOMBINANT
     Dosage: 3000 UNITS
     Route: 042
  3. AMICAR [Concomitant]
     Active Substance: AMINOCAPROIC ACID

REACTIONS (3)
  - Post procedural haemorrhage [Recovered/Resolved]
  - Arthralgia [Unknown]
  - Haemophilic arthropathy [Unknown]

NARRATIVE: CASE EVENT DATE: 20220201
